FAERS Safety Report 8132491-7 (Version None)
Quarter: 2012Q1

REPORT INFORMATION
  Report Type: 
  Country: None (occurrence: None)
  Receive Date: 20120213
  Receipt Date: 20120203
  Transmission Date: 20120608
  Serious: Yes (Hospitalization, Disabling)
  Sender: FDA-Public Use
  Company Number: JP-BRISTOL-MYERS SQUIBB COMPANY-16313975

PATIENT
  Age: 74 Year
  Sex: Male
  Weight: 72 kg

DRUGS (11)
  1. ANTEBATE [Concomitant]
     Indication: PSORIASIS
     Dosage: QS OINTMENT
     Route: 062
     Dates: start: 20111001, end: 20111214
  2. SOLDEM 3A [Concomitant]
     Indication: PROPHYLAXIS
     Dosage: 13DEC11:13DEC11:1000 ML 14DEC:16DEC11:500 MG :2DAYS
     Route: 042
     Dates: start: 20111213, end: 20111216
  3. CISPLATIN [Suspect]
     Indication: GASTRIC CANCER
     Dosage: ON DAY 8 OF EACH CYCLE RECENT INFU:13DEC11
     Route: 042
     Dates: start: 20111213, end: 20111213
  4. OXAROL [Concomitant]
     Indication: PSORIASIS
     Dosage: QUANTUM SATIS
     Route: 062
     Dates: start: 20111001, end: 20111214
  5. EMEND [Concomitant]
     Indication: PROPHYLAXIS
     Route: 048
     Dates: start: 20111214, end: 20111215
  6. CETUXIMAB [Suspect]
     Indication: GASTRIC CANCER
     Dosage: 5MG/ML IS THE STRENGTH 728MG:06DEC11-ONG, 452.5MG:13DEC11-13DEC11. RECENT INFU:13DEC11
     Route: 042
     Dates: start: 20111206, end: 20111213
  7. FUROSEMIDE [Concomitant]
     Indication: PROPHYLAXIS
     Route: 042
     Dates: start: 20111213, end: 20111215
  8. TS-1 [Suspect]
     Indication: GASTRIC CANCER
     Dosage: CAPSULE
     Route: 048
     Dates: start: 20111206, end: 20111219
  9. MANNITOL [Concomitant]
     Indication: PROPHYLAXIS
     Dosage: 20% MANITOL
     Route: 042
     Dates: start: 20111213, end: 20111216
  10. ISOTONIC SODIUM CHLORIDE [Concomitant]
     Indication: PROPHYLAXIS
     Dosage: 13:13:1750ML,14:14:2000ML,15DEC:16DEC11:1500ML (1D)
     Route: 042
     Dates: start: 20111213, end: 20111216
  11. DEXAMETHASONE SODIUM PHOSPHATE [Concomitant]
     Indication: PROPHYLAXIS OF NAUSEA AND VOMITING
     Route: 042
     Dates: start: 20111214, end: 20111216

REACTIONS (1)
  - TROUSSEAU'S SYNDROME [None]
